FAERS Safety Report 7776867-6 (Version None)
Quarter: 2011Q3

REPORT INFORMATION
  Report Type: 
  Country: None (occurrence: None)
  Receive Date: 20110926
  Receipt Date: 20110908
  Transmission Date: 20111222
  Serious: Yes (Other)
  Sender: FDA-Public Use
  Company Number: US-BAYER-2011-007724

PATIENT
  Age: 24 Year
  Sex: Female
  Weight: 98.866 kg

DRUGS (16)
  1. TORADOL [Concomitant]
     Indication: MUSCULOSKELETAL CHEST PAIN
     Dosage: 30 MG, UNK
     Route: 042
     Dates: start: 20080726
  2. REGLAN [Concomitant]
     Dosage: 5 MG, TID
     Route: 048
     Dates: start: 20080913
  3. YAZ [Suspect]
     Indication: CONTRACEPTION
     Dosage: UNK
     Dates: start: 20070901, end: 20091101
  4. PROTONIX [Concomitant]
     Dosage: 40 MG, UNK
     Route: 042
     Dates: start: 20080726
  5. ZOFRAN [Concomitant]
     Indication: NAUSEA
     Dosage: 4 MG, UNK
     Route: 042
     Dates: start: 20080726
  6. LORTAB [Concomitant]
     Indication: PAIN
     Dosage: 7.5 MG, TID
     Route: 048
     Dates: start: 20060101, end: 20100101
  7. ONDANSETRON HCL [Concomitant]
     Dosage: 8 MG, QD
     Route: 048
     Dates: start: 20060101, end: 20100101
  8. GI COCKTAIL [Concomitant]
     Dosage: UNK
     Route: 048
     Dates: start: 20080726
  9. DILAUDID [Concomitant]
     Dosage: 1 MG, UNK
     Route: 042
     Dates: start: 20080726
  10. NEXIUM [Concomitant]
     Dosage: 40 MG, UNK
     Route: 048
     Dates: start: 20060101, end: 20100101
  11. XANAX [Concomitant]
     Dosage: 0.5 MG, QD
     Route: 048
     Dates: start: 20060101, end: 20100101
  12. DEMEROL/PHENERGAN [Concomitant]
     Dosage: UNK
     Route: 030
     Dates: start: 20080913
  13. AMBIEN [Concomitant]
     Dosage: UNK
     Dates: start: 20060101, end: 20100101
  14. YAZ [Suspect]
     Indication: ACNE
  15. ZOFRAN [Concomitant]
     Dosage: 8 MG, PRN
     Route: 048
     Dates: start: 20080913
  16. SOMA COMPOUND [ACETYLSALICYLIC ACID,CARISOPRODOL] [Concomitant]
     Dosage: UNK UNK, TID
     Route: 048
     Dates: start: 20060101, end: 20100101

REACTIONS (5)
  - PAIN [None]
  - CHOLECYSTITIS CHRONIC [None]
  - CHOLECYSTECTOMY [None]
  - CHOLECYSTITIS [None]
  - CHOLELITHIASIS [None]
